FAERS Safety Report 9222390 (Version 2)
Quarter: 2013Q3

REPORT INFORMATION
  Report Type: Spontaneous
  Country: US (occurrence: US)
  Receive Date: 20130410
  Receipt Date: 20130809
  Transmission Date: 20140515
  Serious: Yes (Death, Other)
  Sender: FDA-Public Use
  Company Number: US-INCYTE CORPORATION-2013IN000677

PATIENT
  Age: 67 Year
  Sex: Male
  Weight: 78.91 kg

DRUGS (5)
  1. JAKAFI [Suspect]
     Indication: MYELOFIBROSIS
     Dosage: 20 MG, BID
     Route: 048
     Dates: start: 201208, end: 20130313
  2. PREVACID [Concomitant]
  3. CELEXA [Concomitant]
  4. CELEBREX [Concomitant]
  5. FLOMAX [Concomitant]

REACTIONS (1)
  - Squamous cell carcinoma of lung [Fatal]
